FAERS Safety Report 17957356 (Version 1)
Quarter: 2020Q2

REPORT INFORMATION
  Report Type: Spontaneous
  Country: CA (occurrence: CA)
  Receive Date: 20200629
  Receipt Date: 20200629
  Transmission Date: 20200714
  Serious: Yes (Hospitalization, Other)
  Sender: FDA-Public Use
  Company Number: CA-PFIZER INC-2020248558

PATIENT
  Age: 13 Year
  Sex: Female

DRUGS (21)
  1. VINCRISTINE SULFATE. [Suspect]
     Active Substance: VINCRISTINE SULFATE
     Dosage: 1.5 MG
     Route: 042
  2. HYDROMORPHONE [Concomitant]
     Active Substance: HYDROMORPHONE
  3. CYCLOPHOSPHAMIDE. [Suspect]
     Active Substance: CYCLOPHOSPHAMIDE
     Dosage: 375 MG, ONCE EVERY 12 HOURS
     Route: 042
  4. DIPHENHYDRAMINE. [Concomitant]
     Active Substance: DIPHENHYDRAMINE
  5. HEPARIN CALCIUM [Concomitant]
     Active Substance: HEPARIN CALCIUM
  6. HYDROCORTISONE. [Concomitant]
     Active Substance: HYDROCORTISONE
  7. DIMENHYDRINATE. [Concomitant]
     Active Substance: DIMENHYDRINATE
     Route: 042
  8. FUROSEMIDE. [Concomitant]
     Active Substance: FUROSEMIDE
  9. METHOTREXATE SODIUM. [Suspect]
     Active Substance: METHOTREXATE SODIUM
     Dosage: 15 MG
     Route: 037
  10. ALLOPURINOL. [Concomitant]
     Active Substance: ALLOPURINOL
  11. FAMOTIDINE. [Concomitant]
     Active Substance: FAMOTIDINE
  12. METHOTREXATE SODIUM. [Suspect]
     Active Substance: METHOTREXATE SODIUM
     Dosage: 4.5 G
     Route: 042
  13. CYCLOPHOSPHAMIDE. [Suspect]
     Active Substance: CYCLOPHOSPHAMIDE
     Indication: BURKITT^S LYMPHOMA
     Dosage: 450 MG
     Route: 042
  14. KETAMINE [Concomitant]
     Active Substance: KETAMINE
  15. METHOTREXATE SODIUM. [Suspect]
     Active Substance: METHOTREXATE SODIUM
     Dosage: 15 MG
     Route: 037
  16. METHOTREXATE SODIUM. [Suspect]
     Active Substance: METHOTREXATE SODIUM
     Dosage: 15 MG
     Route: 037
  17. DOXORUBICIN HCL [Suspect]
     Active Substance: DOXORUBICIN HYDROCHLORIDE
     Dosage: 90 MG
     Route: 042
  18. LEUPROLIDE [LEUPRORELIN] [Concomitant]
     Active Substance: LEUPROLIDE ACETATE
  19. MORPHINE [Concomitant]
     Active Substance: MORPHINE
  20. VINCRISTINE SULFATE. [Suspect]
     Active Substance: VINCRISTINE SULFATE
     Dosage: 2 MG
     Route: 042
  21. RITUXAN [Suspect]
     Active Substance: RITUXIMAB
     Dosage: 560 MG
     Route: 042

REACTIONS (1)
  - Pancytopenia [Unknown]
